FAERS Safety Report 7001545-0 (Version None)
Quarter: 2010Q3

REPORT INFORMATION
  Report Type: 
  Country: None (occurrence: None)
  Receive Date: 20100920
  Receipt Date: 20100910
  Transmission Date: 20110219
  Serious: Yes (Other)
  Sender: FDA-Public Use
  Company Number: US-AMGEN-KDL435404

PATIENT
  Sex: Female

DRUGS (1)
  1. ENBREL [Suspect]
     Indication: PSORIASIS
     Route: 058
     Dates: end: 20100801

REACTIONS (4)
  - COLONIC POLYP [None]
  - DIVERTICULITIS [None]
  - PRECANCEROUS CELLS PRESENT [None]
  - TOOTH INFECTION [None]
